FAERS Safety Report 5941536-1 (Version None)
Quarter: 2008Q4

REPORT INFORMATION
  Report Type: 
  Country: None (occurrence: None)
  Receive Date: 20081103
  Receipt Date: 20081103
  Transmission Date: 20090506
  Serious: Yes (Other)
  Sender: FDA-Public Use
  Company Number: None

PATIENT
  Age: 32 Year
  Sex: Male
  Weight: 83.9154 kg

DRUGS (1)
  1. CHLORPHENIRAMINE MALEATE [Suspect]
     Indication: NASOPHARYNGITIS
     Dates: start: 20081023, end: 20081024

REACTIONS (9)
  - DIARRHOEA [None]
  - DIZZINESS [None]
  - DRY MOUTH [None]
  - NERVOUSNESS [None]
  - PALPITATIONS [None]
  - RESTLESSNESS [None]
  - SOMNOLENCE [None]
  - TREMOR [None]
  - VERTIGO [None]
